FAERS Safety Report 15986516 (Version 2)
Quarter: 2019Q1

REPORT INFORMATION
  Report Type: Spontaneous
  Country: JP (occurrence: JP)
  Receive Date: 20190220
  Receipt Date: 20190225
  Transmission Date: 20190418
  Serious: Yes (Other)
  Sender: FDA-Public Use
  Company Number: JP-PFIZER INC-2019065192

PATIENT
  Age: 85 Year
  Sex: Female

DRUGS (4)
  1. ENALAPRIL MALEATE PFIZER [Suspect]
     Active Substance: ENALAPRIL MALEATE
     Dosage: UNK
     Route: 048
  2. TOVIAZ [Suspect]
     Active Substance: FESOTERODINE FUMARATE
     Route: 048
  3. ELIQUIS [Suspect]
     Active Substance: APIXABAN
     Dosage: UNK
     Route: 048
  4. SELARA [Suspect]
     Active Substance: EPLERENONE
     Dosage: UNK
     Route: 048

REACTIONS (1)
  - Chest pain [Unknown]
